FAERS Safety Report 22092683 (Version 1)
Quarter: 2023Q1

REPORT INFORMATION
  Report Type: Spontaneous
  Country: US (occurrence: None)
  Receive Date: 20230313
  Receipt Date: 20230313
  Transmission Date: 20230417
  Serious: Yes (Disabling)
  Sender: FDA-Public Use
  Company Number: None

PATIENT
  Age: 63 Year
  Sex: Female
  Weight: 67.05 kg

DRUGS (13)
  1. CIPRO [Suspect]
     Active Substance: CIPROFLOXACIN HYDROCHLORIDE
     Indication: Tooth infection
     Dosage: FREQUENCY : TWICE A DAY;?
     Route: 048
     Dates: start: 20230217, end: 20230224
  2. LEXAPRO [Concomitant]
     Active Substance: ESCITALOPRAM OXALATE
  3. WELLBUTRIN [Concomitant]
     Active Substance: BUPROPION HYDROCHLORIDE
  4. ARNICA MONTANA\HERBALS\HOMEOPATHICS [Concomitant]
     Active Substance: ARNICA MONTANA\HERBALS\HOMEOPATHICS
  5. ADVIL [Concomitant]
     Active Substance: IBUPROFEN
  6. VITAMIN C [Concomitant]
     Active Substance: ASCORBIC ACID
  7. VITAMIN D3 [Concomitant]
     Active Substance: CHOLECALCIFEROL
  8. VITAMIN B-COMPLEX [Concomitant]
     Active Substance: DEXPANTHENOL\NIACINAMIDE\PYRIDOXINE HYDROCHLORIDE\RIBOFLAVIN 5^-PHOSPHATE SODIUM\THIAMINE HYDROCHLOR
  9. Calcuim [Concomitant]
  10. QUERCETIN [Concomitant]
     Active Substance: QUERCETIN
  11. Ultra Move Free [Concomitant]
  12. FLAXSEED [Concomitant]
     Active Substance: FLAX SEED
  13. MAGNESIUM B [Concomitant]

REACTIONS (6)
  - Arthralgia [None]
  - Pain in extremity [None]
  - Pain in extremity [None]
  - Pain in extremity [None]
  - Peripheral swelling [None]
  - Tendonitis [None]

NARRATIVE: CASE EVENT DATE: 20230302
